FAERS Safety Report 5291742-7 (Version None)
Quarter: 2007Q2

REPORT INFORMATION
  Report Type: 
  Country: None (occurrence: None)
  Receive Date: 20070410
  Receipt Date: 20070326
  Transmission Date: 20071010
  Serious: Yes (Hospitalization)
  Sender: FDA-Public Use
  Company Number: CO-ELI_LILLY_AND_COMPANY-CO200701003612

PATIENT
  Age: 76 Year
  Sex: Female

DRUGS (9)
  1. FORTEO [Suspect]
     Indication: BONE DENSITY DECREASED
     Dosage: 20 U, DAILY (1/D)
     Route: 058
     Dates: start: 20070116, end: 20070301
  2. LOSARTAN POTASSIUM [Concomitant]
     Indication: HYPERTENSION
     Dosage: 100 MG, DAILY (1/D)
     Route: 048
  3. SPIRONOLACTONE [Concomitant]
     Indication: HYPERTENSION
     Dosage: 40 MG, DAILY (1/D)
     Route: 048
  4. SIMVASTATIN [Concomitant]
     Indication: BLOOD CHOLESTEROL INCREASED
     Dosage: 40 MG, DAILY (1/D)
     Route: 048
  5. CALCIUM-DURA VIT D3 [Concomitant]
     Dosage: UNK UNK, DAILY (1/D)
     Route: 048
  6. CALCITRIOL [Concomitant]
     Indication: HYPOKALAEMIA
     Dosage: UNK UNK, DAILY (1/D)
     Route: 048
  7. OMEPRAZOLE [Concomitant]
  8. INDOMETHACIN [Concomitant]
  9. VITAMIN CAP [Concomitant]

REACTIONS (6)
  - ABDOMINAL DISTENSION [None]
  - HEADACHE [None]
  - HYPERTENSION [None]
  - PAIN IN EXTREMITY [None]
  - RENAL FAILURE [None]
  - VOMITING [None]
